FAERS Safety Report 17112238 (Version 2)
Quarter: 2021Q1

REPORT INFORMATION
  Report Type: Spontaneous
  Country: US (occurrence: US)
  Receive Date: 20191204
  Receipt Date: 20210122
  Transmission Date: 20210419
  Serious: Yes (Hospitalization, Disabling, Other)
  Sender: FDA-Public Use
  Company Number: US-TEVA-2019-US-1146212

PATIENT
  Age: 68 Year
  Sex: Female
  Weight: 61 kg

DRUGS (16)
  1. DOCETAXEL HOSPIRA [Suspect]
     Active Substance: DOCETAXEL
     Dosage: CYCLE 2
     Dates: start: 20150219, end: 20150219
  2. AMLODIPINE [Concomitant]
     Active Substance: AMLODIPINE BESYLATE
     Indication: HYPERTENSION
     Dates: start: 2014
  3. ZETIA [Concomitant]
     Active Substance: EZETIMIBE
     Dates: start: 2014
  4. DOCETAXEL HOSPIRA [Suspect]
     Active Substance: DOCETAXEL
     Dosage: CYCLE 3
     Dates: start: 20150312, end: 20150312
  5. MULTIVITAMINS [Concomitant]
     Active Substance: VITAMINS
  6. DOCETAXEL SAGENT [Suspect]
     Active Substance: DOCETAXEL
     Indication: BREAST CANCER FEMALE
     Dosage: CYCLE 1
     Dates: start: 20150129, end: 20150129
  7. PRAVACHOL [Concomitant]
     Active Substance: PRAVASTATIN SODIUM
     Dates: start: 2014
  8. NEULASTA  6MG/0.6ML SOLUTION [Concomitant]
     Route: 058
     Dates: start: 20141218, end: 20151117
  9. DOCETAXEL SAGENT [Suspect]
     Active Substance: DOCETAXEL
     Dosage: CYCLE 3
     Dates: start: 20150312, end: 20150312
  10. DOCETAXEL SAGENT [Suspect]
     Active Substance: DOCETAXEL
     Dosage: 120 MILLIGRAM DAILY; CYCLE 4
     Dates: start: 20150402, end: 20150402
  11. DOCETAXEL HOSPIRA [Suspect]
     Active Substance: DOCETAXEL
     Dosage: CYCLE 4
     Dates: start: 20150402, end: 20150402
  12. ONDANSETRON HYDROCHLORIDE. [Concomitant]
     Active Substance: ONDANSETRON HYDROCHLORIDE
     Indication: NAUSEA
     Dosage: 24 MILLIGRAM DAILY;
     Route: 048
     Dates: start: 20141218, end: 20151117
  13. EMEND 80 +120MG CAPSULE [Concomitant]
     Dosage: 1 DOSAGE FORMS DAILY; FOR 3 DAYS EVERY 14 DAYS DURING DENSE CHEMOTHERAPY
     Route: 048
  14. CYTOXAN [Concomitant]
     Active Substance: CYCLOPHOSPHAMIDE
  15. DOCETAXEL SAGENT [Suspect]
     Active Substance: DOCETAXEL
     Dosage: CYCLE 2
     Dates: start: 20150219, end: 20150219
  16. DOCETAXEL HOSPIRA [Suspect]
     Active Substance: DOCETAXEL
     Indication: BREAST CANCER FEMALE
     Dosage: CYCLE 1
     Dates: start: 20150129, end: 20150129

REACTIONS (23)
  - Hair texture abnormal [Not Recovered/Not Resolved]
  - Madarosis [Not Recovered/Not Resolved]
  - Gastrooesophageal reflux disease [Unknown]
  - Nail disorder [Unknown]
  - Hypoaesthesia [Not Recovered/Not Resolved]
  - Breast swelling [Unknown]
  - Neuropathy peripheral [Recovered/Resolved]
  - Folliculitis [Recovering/Resolving]
  - Hand dermatitis [Unknown]
  - Hair colour changes [Not Recovered/Not Resolved]
  - Haemorrhoids [Unknown]
  - Discomfort [Unknown]
  - Weight increased [Unknown]
  - Alopecia areata [Not Recovered/Not Resolved]
  - Dizziness [Unknown]
  - Pruritus [Unknown]
  - Nausea [Unknown]
  - Insomnia [Unknown]
  - Adverse event [Unknown]
  - Breast pain [Unknown]
  - Fatigue [Unknown]
  - Blood pressure decreased [Unknown]
  - Anaemia [Unknown]

NARRATIVE: CASE EVENT DATE: 20150210
